FAERS Safety Report 4682402-1 (Version None)
Quarter: 2005Q2

REPORT INFORMATION
  Report Type: 
  Country: None (occurrence: None)
  Receive Date: 20050531
  Receipt Date: 20050221
  Transmission Date: 20051028
  Serious: No
  Sender: FDA-Public Use
  Company Number: 2005BI004159

PATIENT
  Age: 37 Year
  Sex: Female

DRUGS (2)
  1. AMEVIVE [Suspect]
     Indication: PSORIASIS
     Dosage: 15 MG; QW; IM,    15 MG; QW; IM
     Route: 030
     Dates: start: 20040501, end: 20040814
  2. AMEVIVE [Suspect]
     Indication: PSORIASIS
     Dosage: 15 MG; QW; IM,    15 MG; QW; IM
     Route: 030
     Dates: start: 20041127

REACTIONS (1)
  - NASOPHARYNGITIS [None]
